FAERS Safety Report 9696144 (Version 3)
Quarter: 2013Q4

REPORT INFORMATION
  Report Type: Spontaneous
  Country: US (occurrence: None)
  Receive Date: 20131115
  Receipt Date: 20131227
  Transmission Date: 20140711
  Serious: Yes (Other)
  Sender: FDA-Public Use
  Company Number: AUR-APL-2013-09429

PATIENT
  Sex: Female

DRUGS (1)
  1. ALENDRONIC ACID [Suspect]
     Indication: BONE DENSITY DECREASED
     Route: 048

REACTIONS (5)
  - Osteoporosis [None]
  - Upper limb fracture [None]
  - Bone density decreased [None]
  - Product substitution issue [None]
  - Condition aggravated [None]
